FAERS Safety Report 6348939-4 (Version None)
Quarter: 2009Q3

REPORT INFORMATION
  Report Type: 
  Country: None (occurrence: None)
  Receive Date: 20090908
  Receipt Date: 20090820
  Transmission Date: 20100115
  Serious: Yes (Other)
  Sender: FDA-Public Use
  Company Number: ALL1-2009-02412

PATIENT
  Age: 19 Year
  Sex: Male
  Weight: 64.4 kg

DRUGS (3)
  1. LIALDA [Suspect]
     Indication: COLITIS ULCERATIVE
     Dosage: 4.8 G, DAILY, ORAL; 2.4 G, DAILY, ORAL
     Route: 048
     Dates: start: 20080901, end: 20080901
  2. LIALDA [Suspect]
     Indication: COLITIS ULCERATIVE
     Dosage: 4.8 G, DAILY, ORAL; 2.4 G, DAILY, ORAL
     Route: 048
     Dates: start: 20080901, end: 20090328
  3. HERBAL PREPARATION UNKNOWN [Concomitant]

REACTIONS (2)
  - ERYTHEMA NODOSUM [None]
  - HAEMATURIA [None]
